FAERS Safety Report 7679639-6 (Version None)
Quarter: 2011Q3

REPORT INFORMATION
  Report Type: 
  Country: None (occurrence: None)
  Receive Date: 20110812
  Receipt Date: 20110801
  Transmission Date: 20111222
  Serious: Yes (Other)
  Sender: FDA-Public Use
  Company Number: ES-SANOFI-AVENTIS-2011SA049772

PATIENT
  Age: 74 Year
  Sex: Female

DRUGS (9)
  1. CYTARABINE [Suspect]
     Indication: PROPHYLACTIC CHEMOTHERAPY
     Dosage: LIPOSOME, EVERY 28 DAYS
     Route: 037
  2. CYTARABINE [Suspect]
     Dosage: EVERY 28 DAYS
     Route: 037
  3. RITUXIMAB [Concomitant]
     Dosage: 6 CYLCLES GIVEN EACH OF 28 DAYS DURATION
  4. FLUDARABINE PHOSPHATE [Suspect]
     Dosage: EVERY 28 DAYS
     Route: 065
  5. HYDROCORTISONE [Concomitant]
     Indication: PROPHYLAXIS
     Route: 037
  6. DEXAMETHASONE [Concomitant]
     Dosage: 6 CYCLES GIVEN EACH OF DURATION 28 DAYS
  7. MITOXANTRONE [Concomitant]
     Dosage: 6 CYCLES GIV, EACH CYCLE OF DURATION 28 DAYS
  8. FLUDARABINE PHOSPHATE [Suspect]
     Dosage: EVERY 28 DAYS
     Route: 065
  9. DEXAMETHASONE [Concomitant]
     Dosage: DOSE GIVEN FOR SEVEN DAYS AFTER EACH COURSE OF IT CYTARABINE
     Route: 048

REACTIONS (7)
  - POLYURIA [None]
  - HYPOAESTHESIA [None]
  - URINARY INCONTINENCE [None]
  - FAECAL INCONTINENCE [None]
  - URINARY HESITATION [None]
  - PARAESTHESIA [None]
  - CAUDA EQUINA SYNDROME [None]
